FAERS Safety Report 5944285-9 (Version None)
Quarter: 2008Q4

REPORT INFORMATION
  Report Type: 
  Country: None (occurrence: None)
  Receive Date: 20081105
  Receipt Date: 20081029
  Transmission Date: 20090506
  Serious: Yes (Hospitalization, Other)
  Sender: FDA-Public Use
  Company Number: 036018

PATIENT
  Age: 81 Year
  Sex: Female
  Weight: 72.6 kg

DRUGS (5)
  1. TRAZODONE HYDROCHLORIDE [Suspect]
     Indication: INSOMNIA
     Dosage: 50 MG, QD AT 9 PM, ORAL
     Route: 048
     Dates: start: 20080927, end: 20080927
  2. MACROBID [Concomitant]
     Indication: CYSTITIS
     Dates: start: 20080926, end: 20081003
  3. LISINORPIL (LISINOPRIL) [Concomitant]
  4. GLIPIZIDE [Concomitant]
  5. METFORMIN HCL [Concomitant]

REACTIONS (5)
  - FALL [None]
  - FEELING COLD [None]
  - LOSS OF CONSCIOUSNESS [None]
  - RASH [None]
  - URTICARIA [None]
